FAERS Safety Report 6746015-X (Version None)
Quarter: 2010Q2

REPORT INFORMATION
  Report Type: 
  Country: None (occurrence: None)
  Receive Date: 20100528
  Receipt Date: 20100520
  Transmission Date: 20101027
  Serious: Yes (Other)
  Sender: FDA-Public Use
  Company Number: AU-PFIZER INC-2010064370

PATIENT
  Sex: Female

DRUGS (2)
  1. ZELDOX [Suspect]
     Indication: DEPRESSION
     Dosage: 200 MG, 1X/DAY
     Route: 048
  2. ZELDOX [Suspect]
     Indication: ANXIETY

REACTIONS (1)
  - PARKINSONISM [None]
